FAERS Safety Report 21473699 (Version 3)
Quarter: 2022Q4

REPORT INFORMATION
  Report Type: Report from Study
  Country: US (occurrence: US)
  Receive Date: 20221018
  Receipt Date: 20221220
  Transmission Date: 20230112
  Serious: Yes (Other)
  Sender: FDA-Public Use
  Company Number: US-BoehringerIngelheim-2022-BI-195786

PATIENT
  Age: 62 Year
  Sex: Female

DRUGS (1)
  1. GILOTRIF [Suspect]
     Active Substance: AFATINIB
     Indication: Non-small cell lung cancer
     Route: 048
     Dates: start: 20220928

REACTIONS (8)
  - Burn oral cavity [Recovering/Resolving]
  - Drug ineffective [Unknown]
  - Fungal infection [Unknown]
  - Sleep disorder [Unknown]
  - Vulvovaginal discomfort [Unknown]
  - Fatigue [Unknown]
  - Cognitive disorder [Unknown]
  - Lip ulceration [Recovering/Resolving]
